FAERS Safety Report 12630588 (Version 2)
Quarter: 2016Q4

REPORT INFORMATION
  Report Type: Report from Study
  Country: DE (occurrence: DE)
  Receive Date: 20160808
  Receipt Date: 20161010
  Transmission Date: 20170207
  Serious: Yes (Hospitalization)
  Sender: FDA-Public Use
  Company Number: DE-SA-2016SA140945

PATIENT
  Age: 36 Year
  Sex: Male
  Weight: 65 kg

DRUGS (1)
  1. LEMTRADA [Suspect]
     Active Substance: ALEMTUZUMAB
     Indication: MULTIPLE SCLEROSIS
     Route: 041
     Dates: start: 20160406, end: 20160410

REACTIONS (12)
  - Cryptosporidiosis infection [Recovering/Resolving]
  - Epistaxis [Unknown]
  - Blood test abnormal [Unknown]
  - Asthenia [Unknown]
  - Gastric mucosa erythema [Unknown]
  - Eosinophilia [Not Recovered/Not Resolved]
  - Gastroduodenitis [Unknown]
  - Duodenal ulcer [Unknown]
  - Condition aggravated [Unknown]
  - Urine ketone body present [Unknown]
  - Dehydration [Unknown]
  - Diarrhoea [Recovering/Resolving]

NARRATIVE: CASE EVENT DATE: 201605
